FAERS Safety Report 7655905-5 (Version None)
Quarter: 2011Q3

REPORT INFORMATION
  Report Type: 
  Country: None (occurrence: None)
  Receive Date: 20110804
  Receipt Date: 20110804
  Transmission Date: 20111222
  Serious: Yes (Other)
  Sender: FDA-Public Use
  Company Number: None

PATIENT
  Age: 79 Year
  Sex: Male
  Weight: 68.038 kg

DRUGS (2)
  1. CIALIS [Concomitant]
     Dosage: 20MG
  2. VIAGRA [Suspect]
     Indication: ERECTILE DYSFUNCTION
     Dosage: 100MG
     Dates: start: 20110710, end: 20110720

REACTIONS (1)
  - EPISTAXIS [None]
